FAERS Safety Report 9160139 (Version 2)
Quarter: 2013Q2

REPORT INFORMATION
  Report Type: Spontaneous
  Country: US (occurrence: US)
  Receive Date: 20130313
  Receipt Date: 20130424
  Transmission Date: 20140414
  Serious: Yes (Hospitalization)
  Sender: FDA-Public Use
  Company Number: US-INCYTE CORPORATION-2013IN000352

PATIENT
  Age: 63 Year
  Sex: Female
  Weight: 68.93 kg

DRUGS (14)
  1. JAKAFI [Suspect]
     Indication: MYELOFIBROSIS
     Dosage: 20 MG, BID
     Route: 048
     Dates: start: 2012
  2. JAKAFI [Suspect]
     Dosage: 10 MG, BID
     Route: 048
     Dates: start: 20120510, end: 20120710
  3. JAKAFI [Suspect]
     Dosage: 15 MG, BID
     Route: 048
     Dates: start: 20120711
  4. JAKAFI [Suspect]
     Dosage: 25 MG, BID
     Route: 048
     Dates: end: 201302
  5. JAKAFI [Suspect]
     Dosage: 20 MG, BID
     Route: 048
     Dates: start: 201302
  6. FONDAPARINUX [Concomitant]
  7. NORTRIPTYLINE [Concomitant]
  8. PLAVIX [Concomitant]
  9. ATORVASTATIN [Concomitant]
  10. AMLODIPINE [Concomitant]
  11. COREG [Concomitant]
  12. SYNTHROID [Concomitant]
  13. BABY ASPIRIN [Concomitant]
  14. THIOTEPA [Concomitant]
     Dosage: 40 UNK, UNK

REACTIONS (3)
  - Haematoma [Unknown]
  - Muscle spasms [Recovered/Resolved]
  - Pain [Recovered/Resolved]
